FAERS Safety Report 15593940 (Version 1)
Quarter: 2018Q4

REPORT INFORMATION
  Report Type: Spontaneous
  Country: GB (occurrence: GB)
  Receive Date: 20181106
  Receipt Date: 20181106
  Transmission Date: 20190205
  Serious: Yes (Other)
  Sender: FDA-Public Use
  Company Number: GB-MYLANLABS-2018M1083781

PATIENT
  Age: 3 Decade
  Sex: Male

DRUGS (19)
  1. RISPERIDONE. [Concomitant]
     Active Substance: RISPERIDONE
     Indication: PSYCHIATRIC DISORDER PROPHYLAXIS
     Route: 065
     Dates: start: 2011, end: 2014
  2. LORAZEPAM. [Suspect]
     Active Substance: LORAZEPAM
     Indication: ANXIETY
  3. LORAZEPAM. [Suspect]
     Active Substance: LORAZEPAM
     Indication: AGGRESSION
  4. DIAZEPAM. [Suspect]
     Active Substance: DIAZEPAM
     Indication: ANXIETY
     Route: 065
  5. DIAZEPAM. [Suspect]
     Active Substance: DIAZEPAM
     Indication: BALANCE DISORDER
  6. OLANZAPINE. [Concomitant]
     Active Substance: OLANZAPINE
     Route: 065
     Dates: start: 201409, end: 201501
  7. CLOZAPINE. [Suspect]
     Active Substance: CLOZAPINE
     Indication: PSYCHOTIC DISORDER
     Route: 065
     Dates: start: 201501, end: 201507
  8. SERTRALINE [Concomitant]
     Active Substance: SERTRALINE HYDROCHLORIDE
     Indication: ANTIDEPRESSANT THERAPY
     Route: 065
     Dates: start: 2011, end: 2014
  9. ARIPIPRAZOLE. [Concomitant]
     Active Substance: ARIPIPRAZOLE
     Indication: PSYCHIATRIC DISORDER PROPHYLAXIS
     Route: 065
     Dates: start: 2011, end: 2014
  10. LORAZEPAM. [Suspect]
     Active Substance: LORAZEPAM
     Indication: BALANCE DISORDER
     Dosage: INCREASED TO 8 MG/DAY
     Route: 065
     Dates: end: 201409
  11. LORAZEPAM. [Suspect]
     Active Substance: LORAZEPAM
     Indication: PSYCHOTIC DISORDER
  12. QUETIAPINE. [Concomitant]
     Active Substance: QUETIAPINE
     Dosage: 150 MG NOCTE
     Route: 065
     Dates: end: 201409
  13. FLUOXETINE [Suspect]
     Active Substance: FLUOXETINE HYDROCHLORIDE
     Indication: OBSESSIVE-COMPULSIVE DISORDER
     Dosage: HIGH DOSE [DOSAGE NOT STATED]
     Route: 065
     Dates: start: 201504, end: 201507
  14. LORAZEPAM. [Suspect]
     Active Substance: LORAZEPAM
     Indication: CATATONIA
     Dosage: 0.5-1 MG
     Route: 065
  15. QUETIAPINE. [Concomitant]
     Active Substance: QUETIAPINE
     Indication: PSYCHIATRIC DISORDER PROPHYLAXIS
     Dosage: 100 MG MANE
     Route: 065
     Dates: end: 201409
  16. FLUOXETINE [Concomitant]
     Active Substance: FLUOXETINE HYDROCHLORIDE
     Indication: ANTIDEPRESSANT THERAPY
     Route: 065
     Dates: start: 2011, end: 2014
  17. VENLAFAXINE [Suspect]
     Active Substance: VENLAFAXINE HYDROCHLORIDE
     Indication: DEPRESSION
     Route: 065
     Dates: end: 201410
  18. DIAZEPAM. [Suspect]
     Active Substance: DIAZEPAM
     Indication: ANXIETY
  19. OLANZAPINE. [Concomitant]
     Active Substance: OLANZAPINE
     Indication: PSYCHIATRIC DISORDER PROPHYLAXIS
     Dosage: INITIAL DOSAGE NOT STATED
     Route: 065
     Dates: start: 2011, end: 2014

REACTIONS (4)
  - Drug ineffective [Unknown]
  - Sedation [Recovered/Resolved]
  - Quality of life decreased [Recovered/Resolved]
  - Obsessive-compulsive disorder [Recovered/Resolved]
